FAERS Safety Report 8332215-4 (Version None)
Quarter: 2012Q2

REPORT INFORMATION
  Report Type: 
  Country: None (occurrence: None)
  Receive Date: 20120503
  Receipt Date: 20120423
  Transmission Date: 20120825
  Serious: No
  Sender: FDA-Public Use
  Company Number: US-BIOGENIDEC-2012BI012756

PATIENT
  Age: 50 Year
  Sex: Female

DRUGS (4)
  1. TYSABRI [Suspect]
     Indication: MULTIPLE SCLEROSIS
     Route: 042
     Dates: start: 19961101
  2. TYSABRI [Suspect]
     Route: 042
     Dates: start: 20120217
  3. AVONEX [Concomitant]
     Indication: MULTIPLE SCLEROSIS
     Route: 030
     Dates: start: 20061101
  4. TYSABRI [Suspect]
     Route: 042
     Dates: start: 20061106, end: 20111110

REACTIONS (1)
  - MEMORY IMPAIRMENT [None]
